FAERS Safety Report 15455579 (Version 2)
Quarter: 2018Q4

REPORT INFORMATION
  Report Type: Spontaneous
  Country: US (occurrence: US)
  Receive Date: 20181002
  Receipt Date: 20181030
  Transmission Date: 20190204
  Serious: No
  Sender: FDA-Public Use
  Company Number: US-HORIZON-VIM-1202-2018

PATIENT
  Age: 76 Year
  Sex: Female

DRUGS (1)
  1. VIMOVO [Suspect]
     Active Substance: ESOMEPRAZOLE MAGNESIUM\NAPROXEN
     Indication: SCIATICA
     Dosage: 1 TABLET BID
     Dates: start: 2016

REACTIONS (5)
  - Product supply issue [Unknown]
  - Off label use [Unknown]
  - Pain [Unknown]
  - Abdominal pain upper [Unknown]
  - Therapy cessation [Unknown]
